FAERS Safety Report 6618208-3 (Version None)
Quarter: 2010Q1

REPORT INFORMATION
  Report Type: 
  Country: None (occurrence: None)
  Receive Date: 20100308
  Receipt Date: 20100224
  Transmission Date: 20100710
  Serious: Yes (Hospitalization)
  Sender: FDA-Public Use
  Company Number: US-PFIZER INC-2010004531

PATIENT
  Sex: Male
  Weight: 63 kg

DRUGS (2)
  1. SUNITINIB MALATE [Suspect]
     Indication: GASTROINTESTINAL STROMAL TUMOUR
     Dosage: 25 MG, 1X/DAY
     Route: 048
     Dates: start: 20080109, end: 20100121
  2. IMATINIB [Suspect]
     Indication: GASTROINTESTINAL STROMAL TUMOUR
     Dosage: 200 MG, 1X/DAY
     Route: 048
     Dates: start: 20080109, end: 20100122

REACTIONS (3)
  - ABDOMINAL PAIN [None]
  - CHOLANGITIS [None]
  - SEPSIS [None]
